FAERS Safety Report 6372666-0 (Version None)
Quarter: 2009Q3

REPORT INFORMATION
  Report Type: 
  Country: None (occurrence: None)
  Receive Date: 20090924
  Receipt Date: 20090706
  Transmission Date: 20100115
  Serious: No
  Sender: FDA-Public Use
  Company Number: US-ASTRAZENECA-2008UW27600

PATIENT
  Age: 29 Year
  Sex: Female
  Weight: 88.5 kg

DRUGS (8)
  1. SEROQUEL [Suspect]
     Indication: BIPOLAR DISORDER
     Dosage: 25 MG, 50 MG,100 MG, 200 MG, 600 MG AND 800 MG
     Route: 048
     Dates: start: 20011106, end: 20030401
  2. SEROQUEL [Suspect]
     Indication: DEPRESSION
     Dosage: 25 MG, 50 MG,100 MG, 200 MG, 600 MG AND 800 MG
     Route: 048
     Dates: start: 20011106, end: 20030401
  3. PROZAC [Concomitant]
     Dates: start: 20030101
  4. PAXIL [Concomitant]
     Dates: start: 20030101
  5. ZOLOFT [Concomitant]
     Dates: start: 20000101
  6. TRAZODONE [Concomitant]
     Dates: start: 20000101
  7. CYMBALTA [Concomitant]
     Dates: start: 20090101
  8. AMBIEN [Concomitant]
     Dates: start: 20080101, end: 20090101

REACTIONS (3)
  - BLOOD CHOLESTEROL INCREASED [None]
  - BREAST LUMP REMOVAL [None]
  - DIABETES MELLITUS [None]
